FAERS Safety Report 5258203-2 (Version None)
Quarter: 2007Q1

REPORT INFORMATION
  Report Type: 
  Country: None (occurrence: None)
  Receive Date: 20070307
  Receipt Date: 20070301
  Transmission Date: 20070707
  Serious: Yes (Other)
  Sender: FDA-Public Use
  Company Number: GB-MERCK-0702GBR00108

PATIENT
  Age: 78 Year
  Sex: Male
  Weight: 75 kg

DRUGS (7)
  1. TIMOPTIC [Suspect]
     Indication: GLAUCOMA
     Route: 047
     Dates: start: 20040101
  2. ASPIRIN [Concomitant]
     Indication: ISCHAEMIC HEART DISEASE PROPHYLAXIS
     Route: 065
  3. ATENOLOL [Concomitant]
     Indication: MYOCARDIAL ISCHAEMIA
     Route: 065
  4. OMEPRAZOLE [Concomitant]
     Indication: DYSPEPSIA
     Route: 065
  5. ANTIMICROBIAL (UNSPECIFIED) [Concomitant]
     Route: 065
     Dates: start: 20070101
  6. RAMIPRIL [Concomitant]
     Indication: HYPERTENSION
     Route: 065
  7. ATORVASTATIN CALCIUM [Concomitant]
     Indication: LIPIDS INCREASED
     Route: 065

REACTIONS (5)
  - ACCIDENTAL OVERDOSE [None]
  - DRY EYE [None]
  - EYE PAIN [None]
  - INTRAOCULAR PRESSURE INCREASED [None]
  - MYOCARDIAL INFARCTION [None]
